FAERS Safety Report 12306797 (Version 2)
Quarter: 2017Q2

REPORT INFORMATION
  Report Type: Spontaneous
  Country: US (occurrence: US)
  Receive Date: 20160426
  Receipt Date: 20170426
  Transmission Date: 20170830
  Serious: Yes (Hospitalization)
  Sender: FDA-Public Use
  Company Number: US-ALKERMES INC.-ALK-2016-000967

PATIENT
  Age: 35 Year
  Sex: Female
  Weight: 70.75 kg

DRUGS (5)
  1. LITHIUM. [Concomitant]
     Active Substance: LITHIUM
     Indication: BIPOLAR DISORDER
     Dosage: UNK
     Route: 065
  2. SEROQUEL [Concomitant]
     Active Substance: QUETIAPINE FUMARATE
     Indication: BIPOLAR DISORDER
     Dosage: UNK
     Route: 065
  3. LAMICTAL [Concomitant]
     Active Substance: LAMOTRIGINE
     Indication: BIPOLAR DISORDER
     Dosage: UNK
     Route: 065
  4. CLONIDINE. [Concomitant]
     Active Substance: CLONIDINE
     Indication: BIPOLAR DISORDER
     Dosage: UNK
     Route: 065
  5. VIVITROL [Suspect]
     Active Substance: NALTREXONE
     Indication: ALCOHOLISM
     Dosage: 380 MG, QMO
     Route: 030
     Dates: start: 201506

REACTIONS (5)
  - Oxygen saturation decreased [Not Recovered/Not Resolved]
  - Influenza [Unknown]
  - Pneumonia [Not Recovered/Not Resolved]
  - Back pain [Not Recovered/Not Resolved]
  - Tearfulness [Not Recovered/Not Resolved]

NARRATIVE: CASE EVENT DATE: 20160409
